FAERS Safety Report 6682011-9 (Version None)
Quarter: 2010Q2

REPORT INFORMATION
  Report Type: 
  Country: None (occurrence: None)
  Receive Date: 20100414
  Receipt Date: 20100414
  Transmission Date: 20101027
  Serious: Yes (Other)
  Sender: FDA-Public Use
  Company Number: None

PATIENT
  Age: 46 Year
  Sex: Female
  Weight: 136.0791 kg

DRUGS (2)
  1. NUVIGIL [Suspect]
     Indication: ATTENTION DEFICIT/HYPERACTIVITY DISORDER
     Dosage: 250 DAILY PO
     Route: 048
     Dates: start: 20090815, end: 20100413
  2. NUVIGIL [Suspect]
     Indication: HYPERSOMNIA
     Dosage: 250 DAILY PO
     Route: 048
     Dates: start: 20090815, end: 20100413

REACTIONS (4)
  - DEPRESSION SUICIDAL [None]
  - PAIN OF SKIN [None]
  - RASH ERYTHEMATOUS [None]
  - SKIN ODOUR ABNORMAL [None]
